FAERS Safety Report 18194017 (Version 1)
Quarter: 2020Q3

REPORT INFORMATION
  Report Type: Spontaneous
  Country: US (occurrence: US)
  Receive Date: 20200825
  Receipt Date: 20200825
  Transmission Date: 20201103
  Serious: No
  Sender: FDA-Public Use
  Company Number: US-SHIRE-US202027443

PATIENT
  Age: 51 Year
  Sex: Female

DRUGS (1)
  1. VPRIV [Suspect]
     Active Substance: VELAGLUCERASE ALFA
     Indication: GAUCHER^S DISEASE
     Dosage: UNK UNK, 1X/2WKS
     Route: 042
     Dates: start: 20140123

REACTIONS (4)
  - Diarrhoea [Unknown]
  - Abdominal pain [Recovering/Resolving]
  - Vomiting [Unknown]
  - Infusion related reaction [Unknown]

NARRATIVE: CASE EVENT DATE: 20200713
